FAERS Safety Report 9441589 (Version 1)
Quarter: 2013Q3

REPORT INFORMATION
  Report Type: Spontaneous
  Country: US (occurrence: US)
  Receive Date: 20130806
  Receipt Date: 20130806
  Transmission Date: 20140515
  Serious: Yes (Other)
  Sender: FDA-Public Use
  Company Number: US-ROCHE-1257113

PATIENT
  Age: 55 Year
  Sex: Male

DRUGS (2)
  1. XOLAIR [Suspect]
     Indication: ASTHMA
     Route: 058
  2. XOLAIR [Suspect]
     Dosage: ON 02/AUG/2013, PATIENT WAS RE-INJECTED.
     Route: 058

REACTIONS (2)
  - Adverse drug reaction [Recovered/Resolved]
  - Injection site reaction [Unknown]
